FAERS Safety Report 9838157 (Version 2)
Quarter: 2014Q1

REPORT INFORMATION
  Report Type: Spontaneous
  Country: FR (occurrence: FR)
  Receive Date: 20140123
  Receipt Date: 20140123
  Transmission Date: 20141002
  Serious: Yes (Hospitalization)
  Sender: FDA-Public Use
  Company Number: FR-PFIZER INC-2013306840

PATIENT
  Age: 52 Year
  Sex: Female

DRUGS (5)
  1. ALDACTONE [Suspect]
     Dosage: UNK
     Route: 048
     Dates: end: 20131019
  2. RISPERDAL [Concomitant]
  3. ZOPICLONE [Concomitant]
  4. DEPAMIDE [Concomitant]
  5. LEPTICUR [Concomitant]

REACTIONS (2)
  - Hyponatraemia [Recovered/Resolved]
  - Agitation [Unknown]
